FAERS Safety Report 4686596-3 (Version None)
Quarter: 2005Q2

REPORT INFORMATION
  Report Type: 
  Country: None (occurrence: None)
  Receive Date: 20050609
  Receipt Date: 20050606
  Transmission Date: 20051028
  Serious: Yes (Death)
  Sender: FDA-Public Use
  Company Number: US-BRISTOL-MYERS SQUIBB COMPANY-12994455

PATIENT
  Age: 68 Year
  Sex: Male

DRUGS (1)
  1. CARBOPLATIN [Suspect]
     Dates: start: 20050517, end: 20050517

REACTIONS (1)
  - DEATH [None]
